FAERS Safety Report 5404369-0 (Version None)
Quarter: 2007Q3

REPORT INFORMATION
  Report Type: 
  Country: None (occurrence: None)
  Receive Date: 20070802
  Receipt Date: 20070731
  Transmission Date: 20080115
  Serious: Yes (Life-Threatening, Hospitalization, Other)
  Sender: FDA-Public Use
  Company Number: DE-BRISTOL-MYERS SQUIBB COMPANY-13863907

PATIENT
  Age: 58 Year
  Sex: Female

DRUGS (10)
  1. METFORMIN HCL [Suspect]
     Route: 048
     Dates: start: 20070706
  2. ABILIFY [Suspect]
     Dosage: MAXIMUM OF 49 TABLETS TAKEN
     Route: 048
     Dates: start: 20070706
  3. AXURA [Suspect]
     Dosage: MAXIMUM OF 100 TABLETS
     Route: 048
     Dates: start: 20070706
  4. BAYOTENSIN [Suspect]
     Dosage: MAXIMUM OF 1 TABLET
     Route: 048
     Dates: start: 20070706
  5. CITALOPRAM HYDROBROMIDE [Suspect]
     Route: 048
     Dates: start: 20070706
  6. LEVOTHYROXINE SODIUM [Suspect]
     Dosage: MAXIMUM 10 TABLETS
     Route: 048
     Dates: start: 20070706
  7. MELPERONE HCL [Suspect]
     Dosage: MAXIMUM 50 TABLETS
     Route: 048
     Dates: start: 20070706
  8. MIRTAZAPINE [Suspect]
     Dosage: MAXIMUM 20 TABLETS
     Route: 048
     Dates: start: 20070706
  9. TAVOR [Suspect]
     Dosage: MAXIMUM 50 TABLETS
     Route: 048
     Dates: start: 20070706
  10. ZOPICLONE [Suspect]
     Dosage: MAXIMUM 20 TABLETS
     Route: 048
     Dates: start: 20070706

REACTIONS (3)
  - COMA [None]
  - MULTIPLE DRUG OVERDOSE [None]
  - SUICIDE ATTEMPT [None]
